FAERS Safety Report 8507489-7 (Version None)
Quarter: 2012Q3

REPORT INFORMATION
  Report Type: 
  Country: None (occurrence: None)
  Receive Date: 20120712
  Receipt Date: 20120709
  Transmission Date: 20120928
  Serious: Yes (Hospitalization)
  Sender: FDA-Public Use
  Company Number: DE-AMGEN-DEUSP2012026521

PATIENT
  Sex: Female

DRUGS (27)
  1. COTRIM [Concomitant]
     Dosage: 960 MG, 2 TIMES/WK
     Route: 048
     Dates: start: 20120310
  2. HYDROCHLOROTHIAZIDE [Concomitant]
     Indication: HYPERTENSION
     Dosage: 12.5 MG, QD
     Route: 048
  3. PREGABALIN [Concomitant]
     Dosage: 500 MG, QD
     Route: 048
  4. URALYT                             /01779901/ [Concomitant]
     Dosage: 3 DF, Q2WK
     Route: 048
     Dates: start: 20120307
  5. DIOVAN [Concomitant]
     Indication: HYPERTENSION
     Dosage: 80 MG, QD
     Route: 048
  6. INSULIN DETEMIR [Concomitant]
  7. CERTOPARIN SODIUM [Concomitant]
  8. POTASSIUM SODIUM HYDROGEN CITRATE [Concomitant]
  9. LEVOTHYROXINE SODIUM [Concomitant]
     Indication: HYPOTHYROIDISM
     Dosage: 125 MUG, QD
     Route: 048
  10. LYRICA [Concomitant]
     Indication: PAIN
     Dosage: 50 MG, QD
     Route: 048
  11. CYCLOPHOSPHAMIDE [Suspect]
     Indication: MALIGNANT LYMPHOID NEOPLASM
     Dosage: 1320 MG, Q2WK
     Route: 042
     Dates: start: 20120307, end: 20120522
  12. VINCRISTINE [Suspect]
     Indication: MALIGNANT LYMPHOID NEOPLASM
     Dosage: 2 MG, Q2WK
     Route: 042
     Dates: start: 20120307, end: 20120404
  13. PREDNISONE [Suspect]
     Indication: MALIGNANT LYMPHOID NEOPLASM
     Dosage: 100 MG, UNK
     Route: 048
     Dates: start: 20120306, end: 20120526
  14. EMEND [Concomitant]
     Dosage: 205 MG, Q2WK
     Route: 042
     Dates: start: 20120321
  15. ALLOPURINOL [Concomitant]
     Dosage: 300 MG, QD
     Route: 048
  16. NEULASTA [Suspect]
     Indication: MALIGNANT LYMPHOID NEOPLASM
     Dosage: 6 MG, Q2WK
     Route: 058
     Dates: start: 20120309, end: 20120524
  17. RITUXIMAB [Suspect]
     Indication: MALIGNANT LYMPHOID NEOPLASM
     Dosage: 660 MG, Q2WK
     Route: 042
     Dates: start: 20120306
  18. OLMESARTAN MEDOXOMIL AND HYDROCHLOROTHIZIDE [Concomitant]
     Dosage: 20 MG, QD
     Route: 048
  19. LISPRO INSULIN [Concomitant]
  20. APREPITANT [Concomitant]
     Dosage: 125 MG, Q2WK
     Route: 042
     Dates: start: 20120321, end: 20120522
  21. DOXORUBICIN HCL [Suspect]
     Indication: MALIGNANT LYMPHOID NEOPLASM
     Dosage: 88 MG, Q2WK
     Route: 042
     Dates: start: 20120307, end: 20120522
  22. GRANISETRON HYDROCHLORIDE [Concomitant]
     Dosage: 1 MG, Q2WK
     Route: 042
     Dates: start: 20120307
  23. MESNA [Concomitant]
     Dosage: 900 MG, Q2WK
     Route: 048
     Dates: start: 20120307, end: 20120522
  24. SIMVASTATIN [Concomitant]
     Dosage: 20 MG, QD
     Route: 048
  25. CYMBALTA [Concomitant]
     Indication: DEPRESSION
     Dosage: 60 MG, QD
  26. ACYCLOVIR [Concomitant]
     Dosage: 400 MG, 4 TIMES/WK
     Route: 048
     Dates: start: 20120308
  27. PANTOPRAZOLE SODIUM [Concomitant]
     Dosage: 40 MG, QD
     Route: 048

REACTIONS (3)
  - HYPOGLYCAEMIA [None]
  - HYPERGLYCAEMIA [None]
  - HYPOKALAEMIA [None]
